FAERS Safety Report 8462364-1 (Version None)
Quarter: 2012Q2

REPORT INFORMATION
  Report Type: 
  Country: None (occurrence: None)
  Receive Date: 20120625
  Receipt Date: 20120613
  Transmission Date: 20120825
  Serious: Yes (Other)
  Sender: FDA-Public Use
  Company Number: JP-VERTEX PHARMACEUTICALS INC.-AE-2012-008898

PATIENT
  Age: 53 Year
  Sex: Male

DRUGS (8)
  1. TELAVIC (TELAPREVIR) [Suspect]
     Indication: HEPATITIS C
     Route: 048
     Dates: start: 20120412, end: 20120426
  2. ZOLPIDEM [Concomitant]
     Route: 048
     Dates: start: 20120416
  3. MAGLAX [Concomitant]
     Route: 048
     Dates: start: 20120416
  4. REBETOL [Concomitant]
     Indication: HEPATITIS C
     Route: 048
     Dates: start: 20120412, end: 20120425
  5. REBETOL [Concomitant]
     Route: 048
     Dates: start: 20120510
  6. PEG-INTRON [Concomitant]
     Indication: HEPATITIS C
     Route: 058
     Dates: start: 20120412, end: 20120517
  7. URSO 250 [Concomitant]
     Route: 048
  8. AZUNOL [Concomitant]
     Route: 049
     Dates: start: 20120416

REACTIONS (2)
  - WHITE BLOOD CELL COUNT DECREASED [None]
  - OFF LABEL USE [None]
